FAERS Safety Report 6371526-9 (Version None)
Quarter: 2009Q3

REPORT INFORMATION
  Report Type: 
  Country: None (occurrence: None)
  Receive Date: 20090923
  Receipt Date: 20071212
  Transmission Date: 20100115
  Serious: Yes (Other)
  Sender: FDA-Public Use
  Company Number: US-ASTRAZENECA-2007UW21479

PATIENT
  Age: 484 Month
  Sex: Female
  Weight: 63.5 kg

DRUGS (14)
  1. SEROQUEL [Suspect]
     Indication: ANXIETY
     Route: 048
     Dates: start: 20030825
  2. SEROQUEL [Suspect]
     Indication: INSOMNIA
     Route: 048
     Dates: start: 20030825
  3. SEROQUEL [Suspect]
     Indication: DEPRESSION
     Route: 048
     Dates: start: 20030825
  4. SEROQUEL [Suspect]
     Route: 048
     Dates: start: 20030925, end: 20031112
  5. SEROQUEL [Suspect]
     Route: 048
     Dates: start: 20030925, end: 20031112
  6. SEROQUEL [Suspect]
     Route: 048
     Dates: start: 20030925, end: 20031112
  7. SEROQUEL [Suspect]
     Route: 048
     Dates: start: 20031201, end: 20040301
  8. SEROQUEL [Suspect]
     Route: 048
     Dates: start: 20031201, end: 20040301
  9. SEROQUEL [Suspect]
     Route: 048
     Dates: start: 20031201, end: 20040301
  10. GLUCOTROL [Concomitant]
     Dates: start: 20000707
  11. PRINIVIL [Concomitant]
     Dates: start: 20040413
  12. DILANTIN [Concomitant]
     Dates: start: 20040923
  13. CLONAZEPAM [Concomitant]
     Dates: start: 20040923
  14. GABAPENTIN [Concomitant]
     Dates: start: 20080202

REACTIONS (2)
  - DIABETES MELLITUS [None]
  - DIABETIC COMA [None]
